FAERS Safety Report 6233420-3 (Version None)
Quarter: 2009Q2

REPORT INFORMATION
  Report Type: 
  Country: None (occurrence: None)
  Receive Date: 20090617
  Receipt Date: 20090608
  Transmission Date: 20091009
  Serious: Yes (Other)
  Sender: FDA-Public Use
  Company Number: US-BAYER-200911770BCC

PATIENT
  Age: 65 Year
  Sex: Male

DRUGS (10)
  1. ALEVE [Suspect]
     Indication: DRUG USE FOR UNKNOWN INDICATION
     Dosage: 2 TABLETS
     Route: 048
     Dates: start: 20090605
  2. ALEVE [Suspect]
     Dosage: 1 TABLET
     Route: 048
     Dates: start: 20090606
  3. ALEVE [Suspect]
     Dosage: 1 TABLET
     Route: 048
     Dates: start: 20090607
  4. PHENOBARBITAL TAB [Concomitant]
     Route: 065
  5. DILANTIN [Concomitant]
     Route: 065
  6. LASIX [Concomitant]
     Route: 065
  7. SPIRONOLACTONE [Concomitant]
     Route: 065
  8. POTASSIUM CHLORIDE [Concomitant]
     Route: 065
  9. LORATADINE [Concomitant]
     Route: 065
  10. MUCINEX [Concomitant]
     Route: 065

REACTIONS (3)
  - FAECES DISCOLOURED [None]
  - GASTROINTESTINAL HAEMORRHAGE [None]
  - HAEMATEMESIS [None]
